FAERS Safety Report 25962745 (Version 1)
Quarter: 2025Q4

REPORT INFORMATION
  Report Type: Spontaneous
  Country: GB (occurrence: GB)
  Receive Date: 20251027
  Receipt Date: 20251027
  Transmission Date: 20260119
  Serious: Yes (Hospitalization, Other)
  Sender: MYLAN
  Company Number: None

PATIENT
  Age: 84 Year
  Sex: Male

DRUGS (68)
  1. METFORMIN [Suspect]
     Active Substance: METFORMIN HYDROCHLORIDE
     Indication: Product used for unknown indication
     Dosage: 500 MILLIGRAM
  2. METFORMIN [Suspect]
     Active Substance: METFORMIN HYDROCHLORIDE
     Dosage: 500 MILLIGRAM
     Route: 065
  3. METFORMIN [Suspect]
     Active Substance: METFORMIN HYDROCHLORIDE
     Dosage: 500 MILLIGRAM
     Route: 065
  4. METFORMIN [Suspect]
     Active Substance: METFORMIN HYDROCHLORIDE
     Dosage: 500 MILLIGRAM
  5. ENOXAPARIN [Concomitant]
     Active Substance: ENOXAPARIN
     Dosage: 80 MILLIGRAM, BID (PRE-FILLED SYRINGES TWICE A DAY AT 9 AM AND 9 PM - HELD HAEMATURIA)
  6. ENOXAPARIN [Concomitant]
     Active Substance: ENOXAPARIN
     Dosage: 80 MILLIGRAM, BID (PRE-FILLED SYRINGES TWICE A DAY AT 9 AM AND 9 PM - HELD HAEMATURIA)
     Route: 065
  7. ENOXAPARIN [Concomitant]
     Active Substance: ENOXAPARIN
     Dosage: 80 MILLIGRAM, BID (PRE-FILLED SYRINGES TWICE A DAY AT 9 AM AND 9 PM - HELD HAEMATURIA)
     Route: 065
  8. ENOXAPARIN [Concomitant]
     Active Substance: ENOXAPARIN
     Dosage: 80 MILLIGRAM, BID (PRE-FILLED SYRINGES TWICE A DAY AT 9 AM AND 9 PM - HELD HAEMATURIA)
  9. CHOLECALCIFEROL [Concomitant]
     Active Substance: CHOLECALCIFEROL
     Dosage: 1 DOSAGE FORM, AM (800 UNIT CAPSULES ONE TO BE TAKEN EACH MORNING)
  10. CHOLECALCIFEROL [Concomitant]
     Active Substance: CHOLECALCIFEROL
     Dosage: 1 DOSAGE FORM, AM (800 UNIT CAPSULES ONE TO BE TAKEN EACH MORNING)
     Route: 065
  11. CHOLECALCIFEROL [Concomitant]
     Active Substance: CHOLECALCIFEROL
     Dosage: 1 DOSAGE FORM, AM (800 UNIT CAPSULES ONE TO BE TAKEN EACH MORNING)
     Route: 065
  12. CHOLECALCIFEROL [Concomitant]
     Active Substance: CHOLECALCIFEROL
     Dosage: 1 DOSAGE FORM, AM (800 UNIT CAPSULES ONE TO BE TAKEN EACH MORNING)
  13. SENNA [Concomitant]
     Active Substance: SENNOSIDES
     Dosage: 2 DOSAGE FORM, PM (TWO TO BE TAKEN AT NIGHT WHEN RERQUIRED FOR CONSTIPATION)
  14. SENNA [Concomitant]
     Active Substance: SENNOSIDES
     Dosage: 2 DOSAGE FORM, PM (TWO TO BE TAKEN AT NIGHT WHEN RERQUIRED FOR CONSTIPATION)
     Route: 065
  15. SENNA [Concomitant]
     Active Substance: SENNOSIDES
     Dosage: 2 DOSAGE FORM, PM (TWO TO BE TAKEN AT NIGHT WHEN RERQUIRED FOR CONSTIPATION)
     Route: 065
  16. SENNA [Concomitant]
     Active Substance: SENNOSIDES
     Dosage: 2 DOSAGE FORM, PM (TWO TO BE TAKEN AT NIGHT WHEN RERQUIRED FOR CONSTIPATION)
  17. SIMVASTATIN [Concomitant]
     Active Substance: SIMVASTATIN
     Dosage: 1 DOSAGE FORM, PM (ONE TO BE TAKEN AT NIGHT)
  18. SIMVASTATIN [Concomitant]
     Active Substance: SIMVASTATIN
     Dosage: 1 DOSAGE FORM, PM (ONE TO BE TAKEN AT NIGHT)
     Route: 065
  19. SIMVASTATIN [Concomitant]
     Active Substance: SIMVASTATIN
     Dosage: 1 DOSAGE FORM, PM (ONE TO BE TAKEN AT NIGHT)
     Route: 065
  20. SIMVASTATIN [Concomitant]
     Active Substance: SIMVASTATIN
     Dosage: 1 DOSAGE FORM, PM (ONE TO BE TAKEN AT NIGHT)
  21. NICORANDIL [Concomitant]
     Active Substance: NICORANDIL
     Dosage: 1 DOSAGE FORM, BID (ONE TO BE TAKEN TWICE A DAY - REDUCE TO 10MG BD WITH AIM TO STOP (GIVEN CHRONIC SKIN WOUNDS)
  22. NICORANDIL [Concomitant]
     Active Substance: NICORANDIL
     Dosage: 1 DOSAGE FORM, BID (ONE TO BE TAKEN TWICE A DAY - REDUCE TO 10MG BD WITH AIM TO STOP (GIVEN CHRONIC SKIN WOUNDS)
  23. NICORANDIL [Concomitant]
     Active Substance: NICORANDIL
     Dosage: 1 DOSAGE FORM, BID (ONE TO BE TAKEN TWICE A DAY - REDUCE TO 10MG BD WITH AIM TO STOP (GIVEN CHRONIC SKIN WOUNDS)
     Route: 065
  24. NICORANDIL [Concomitant]
     Active Substance: NICORANDIL
     Dosage: 1 DOSAGE FORM, BID (ONE TO BE TAKEN TWICE A DAY - REDUCE TO 10MG BD WITH AIM TO STOP (GIVEN CHRONIC SKIN WOUNDS)
     Route: 065
  25. NICORANDIL [Concomitant]
     Active Substance: NICORANDIL
     Dosage: 10 MILLIGRAM, BID (REDUCE TO 10MG BD WITH AIM TO STOP (GIVEN CHRONIC SKIN WOUNDS)
  26. NICORANDIL [Concomitant]
     Active Substance: NICORANDIL
     Dosage: 10 MILLIGRAM, BID (REDUCE TO 10MG BD WITH AIM TO STOP (GIVEN CHRONIC SKIN WOUNDS)
  27. NICORANDIL [Concomitant]
     Active Substance: NICORANDIL
     Dosage: 10 MILLIGRAM, BID (REDUCE TO 10MG BD WITH AIM TO STOP (GIVEN CHRONIC SKIN WOUNDS)
     Route: 065
  28. NICORANDIL [Concomitant]
     Active Substance: NICORANDIL
     Dosage: 10 MILLIGRAM, BID (REDUCE TO 10MG BD WITH AIM TO STOP (GIVEN CHRONIC SKIN WOUNDS)
     Route: 065
  29. BISOPROLOL [Concomitant]
     Active Substance: BISOPROLOL
     Dosage: 1 DOSAGE FORM, QD (ONE TO BE TAKEN EACH DAY)
  30. BISOPROLOL [Concomitant]
     Active Substance: BISOPROLOL
     Dosage: 1 DOSAGE FORM, QD (ONE TO BE TAKEN EACH DAY)
     Route: 065
  31. BISOPROLOL [Concomitant]
     Active Substance: BISOPROLOL
     Dosage: 1 DOSAGE FORM, QD (ONE TO BE TAKEN EACH DAY)
     Route: 065
  32. BISOPROLOL [Concomitant]
     Active Substance: BISOPROLOL
     Dosage: 1 DOSAGE FORM, QD (ONE TO BE TAKEN EACH DAY)
  33. RANOLAZINE [Concomitant]
     Active Substance: RANOLAZINE
     Dosage: 1 DOSAGE FORM, BID (ONE TO BE TAKEN TWICE A DAY)
  34. RANOLAZINE [Concomitant]
     Active Substance: RANOLAZINE
     Dosage: 1 DOSAGE FORM, BID (ONE TO BE TAKEN TWICE A DAY)
     Route: 065
  35. RANOLAZINE [Concomitant]
     Active Substance: RANOLAZINE
     Dosage: 1 DOSAGE FORM, BID (ONE TO BE TAKEN TWICE A DAY)
     Route: 065
  36. RANOLAZINE [Concomitant]
     Active Substance: RANOLAZINE
     Dosage: 1 DOSAGE FORM, BID (ONE TO BE TAKEN TWICE A DAY)
  37. MIRTAZAPINE [Concomitant]
     Active Substance: MIRTAZAPINE
     Dosage: 1 DOSAGE FORM, PM (ONE TO BE TAKEN AT NIGHT)
  38. MIRTAZAPINE [Concomitant]
     Active Substance: MIRTAZAPINE
     Dosage: 1 DOSAGE FORM, PM (ONE TO BE TAKEN AT NIGHT)
     Route: 065
  39. MIRTAZAPINE [Concomitant]
     Active Substance: MIRTAZAPINE
     Dosage: 1 DOSAGE FORM, PM (ONE TO BE TAKEN AT NIGHT)
     Route: 065
  40. MIRTAZAPINE [Concomitant]
     Active Substance: MIRTAZAPINE
     Dosage: 1 DOSAGE FORM, PM (ONE TO BE TAKEN AT NIGHT)
  41. FAMOTIDINE [Concomitant]
     Active Substance: FAMOTIDINE
     Dosage: 1 DOSAGE FORM, AM (ONE TO BE TAKEN IN THE MORNING)
  42. FAMOTIDINE [Concomitant]
     Active Substance: FAMOTIDINE
     Dosage: 1 DOSAGE FORM, AM (ONE TO BE TAKEN IN THE MORNING)
     Route: 065
  43. FAMOTIDINE [Concomitant]
     Active Substance: FAMOTIDINE
     Dosage: 1 DOSAGE FORM, AM (ONE TO BE TAKEN IN THE MORNING)
     Route: 065
  44. FAMOTIDINE [Concomitant]
     Active Substance: FAMOTIDINE
     Dosage: 1 DOSAGE FORM, AM (ONE TO BE TAKEN IN THE MORNING)
  45. DOXAZOSIN [Concomitant]
     Active Substance: DOXAZOSIN MESYLATE
     Dosage: 1 DOSAGE FORM, QD (ONE TO BE TAKEN EACH DAY)
  46. DOXAZOSIN [Concomitant]
     Active Substance: DOXAZOSIN MESYLATE
     Dosage: 1 DOSAGE FORM, QD (ONE TO BE TAKEN EACH DAY)
     Route: 065
  47. DOXAZOSIN [Concomitant]
     Active Substance: DOXAZOSIN MESYLATE
     Dosage: 1 DOSAGE FORM, QD (ONE TO BE TAKEN EACH DAY)
     Route: 065
  48. DOXAZOSIN [Concomitant]
     Active Substance: DOXAZOSIN MESYLATE
     Dosage: 1 DOSAGE FORM, QD (ONE TO BE TAKEN EACH DAY)
  49. DOCUSATE [Concomitant]
     Active Substance: DOCUSATE
     Dosage: UNK, BID (ONE OR TWO TO BE TAKEN IN THE MORNING AND AT NIGHT WHEN REQUIRED FOR CONSTIPATION)
  50. DOCUSATE [Concomitant]
     Active Substance: DOCUSATE
     Dosage: UNK, BID (ONE OR TWO TO BE TAKEN IN THE MORNING AND AT NIGHT WHEN REQUIRED FOR CONSTIPATION)
     Route: 065
  51. DOCUSATE [Concomitant]
     Active Substance: DOCUSATE
     Dosage: UNK, BID (ONE OR TWO TO BE TAKEN IN THE MORNING AND AT NIGHT WHEN REQUIRED FOR CONSTIPATION)
     Route: 065
  52. DOCUSATE [Concomitant]
     Active Substance: DOCUSATE
     Dosage: UNK, BID (ONE OR TWO TO BE TAKEN IN THE MORNING AND AT NIGHT WHEN REQUIRED FOR CONSTIPATION)
  53. ISOSORBIDE MONONITRATE [Concomitant]
     Active Substance: ISOSORBIDE MONONITRATE
     Dosage: 1 DOSAGE FORM, AM (ONE TO BE TAKEN EACH MORNING)
  54. ISOSORBIDE MONONITRATE [Concomitant]
     Active Substance: ISOSORBIDE MONONITRATE
     Dosage: 1 DOSAGE FORM, AM (ONE TO BE TAKEN EACH MORNING)
     Route: 065
  55. ISOSORBIDE MONONITRATE [Concomitant]
     Active Substance: ISOSORBIDE MONONITRATE
     Dosage: 1 DOSAGE FORM, AM (ONE TO BE TAKEN EACH MORNING)
     Route: 065
  56. ISOSORBIDE MONONITRATE [Concomitant]
     Active Substance: ISOSORBIDE MONONITRATE
     Dosage: 1 DOSAGE FORM, AM (ONE TO BE TAKEN EACH MORNING)
  57. 3M CAVILON ANTIFUNGAL [Concomitant]
     Active Substance: MICONAZOLE NITRATE
     Dosage: UNK, PRN (DURABLE BARRIER CREAM APPLY TO THE AFFECTED AREAS WHEN REQUIRED AUTHORISED (NOT YET ISSUED): 15-JUL-2025)
  58. 3M CAVILON ANTIFUNGAL [Concomitant]
     Active Substance: MICONAZOLE NITRATE
     Dosage: UNK, PRN (DURABLE BARRIER CREAM APPLY TO THE AFFECTED AREAS WHEN REQUIRED AUTHORISED (NOT YET ISSUED): 15-JUL-2025)
     Route: 065
  59. 3M CAVILON ANTIFUNGAL [Concomitant]
     Active Substance: MICONAZOLE NITRATE
     Dosage: UNK, PRN (DURABLE BARRIER CREAM APPLY TO THE AFFECTED AREAS WHEN REQUIRED AUTHORISED (NOT YET ISSUED): 15-JUL-2025)
     Route: 065
  60. 3M CAVILON ANTIFUNGAL [Concomitant]
     Active Substance: MICONAZOLE NITRATE
     Dosage: UNK, PRN (DURABLE BARRIER CREAM APPLY TO THE AFFECTED AREAS WHEN REQUIRED AUTHORISED (NOT YET ISSUED): 15-JUL-2025)
  61. POLYETHYLENE GLYCOLS [Concomitant]
     Active Substance: POLYETHYLENE GLYCOLS
     Dosage: 1 DOSAGE FORM, BID (SACHETS NPF SUGAR FREE ONE SACHET TO BE TAKEN TWICE A DAY WHEN REQUIRED FOR CONSTIPATION)
  62. POLYETHYLENE GLYCOLS [Concomitant]
     Active Substance: POLYETHYLENE GLYCOLS
     Dosage: 1 DOSAGE FORM, BID (SACHETS NPF SUGAR FREE ONE SACHET TO BE TAKEN TWICE A DAY WHEN REQUIRED FOR CONSTIPATION)
     Route: 065
  63. POLYETHYLENE GLYCOLS [Concomitant]
     Active Substance: POLYETHYLENE GLYCOLS
     Dosage: 1 DOSAGE FORM, BID (SACHETS NPF SUGAR FREE ONE SACHET TO BE TAKEN TWICE A DAY WHEN REQUIRED FOR CONSTIPATION)
     Route: 065
  64. POLYETHYLENE GLYCOLS [Concomitant]
     Active Substance: POLYETHYLENE GLYCOLS
     Dosage: 1 DOSAGE FORM, BID (SACHETS NPF SUGAR FREE ONE SACHET TO BE TAKEN TWICE A DAY WHEN REQUIRED FOR CONSTIPATION)
  65. ACETAMINOPHEN [Concomitant]
     Active Substance: ACETAMINOPHEN
     Dosage: UNK UNK, QID (ONE OR TWO TO BE TAKEN FOUR TIMES A DAY WHEN REQUIRED FOR PAIN )
  66. ACETAMINOPHEN [Concomitant]
     Active Substance: ACETAMINOPHEN
     Dosage: UNK UNK, QID (ONE OR TWO TO BE TAKEN FOUR TIMES A DAY WHEN REQUIRED FOR PAIN )
     Route: 065
  67. ACETAMINOPHEN [Concomitant]
     Active Substance: ACETAMINOPHEN
     Dosage: UNK UNK, QID (ONE OR TWO TO BE TAKEN FOUR TIMES A DAY WHEN REQUIRED FOR PAIN )
     Route: 065
  68. ACETAMINOPHEN [Concomitant]
     Active Substance: ACETAMINOPHEN
     Dosage: UNK UNK, QID (ONE OR TWO TO BE TAKEN FOUR TIMES A DAY WHEN REQUIRED FOR PAIN )

REACTIONS (2)
  - Kidney infection [Unknown]
  - Lactic acidosis [Unknown]
